FAERS Safety Report 9525250 (Version 1)
Quarter: 2013Q3

REPORT INFORMATION
  Report Type: Spontaneous
  Country: US (occurrence: None)
  Receive Date: 20130913
  Receipt Date: 20130913
  Transmission Date: 20140515
  Serious: No
  Sender: FDA-Public Use
  Company Number: None

PATIENT
  Age: 63 Year
  Sex: Female

DRUGS (1)
  1. HUMIRA 40MG ABBVIE [Suspect]
     Dosage: HUMIRA 40MG  EVERY 2 WEEKS SQ
     Route: 058
     Dates: start: 201110

REACTIONS (1)
  - Mass [None]
